FAERS Safety Report 6017578-7 (Version None)
Quarter: 2008Q4

REPORT INFORMATION
  Report Type: 
  Country: None (occurrence: None)
  Receive Date: 20081223
  Receipt Date: 20081216
  Transmission Date: 20090506
  Serious: Yes (Hospitalization)
  Sender: FDA-Public Use
  Company Number: FR-PFIZER INC-2008156421

PATIENT

DRUGS (4)
  1. AMLOD [Suspect]
     Indication: HYPERTENSION
     Route: 048
     Dates: start: 20080915, end: 20081001
  2. AUGMENTIN '125' [Concomitant]
     Dates: start: 20080912
  3. NORMACOL [Concomitant]
     Dosage: UNK
     Dates: start: 20080901
  4. FORLAX [Concomitant]
     Dosage: UNK
     Dates: start: 20080901

REACTIONS (1)
  - COLONIC PSEUDO-OBSTRUCTION [None]
